FAERS Safety Report 16250152 (Version 1)
Quarter: 2019Q2

REPORT INFORMATION
  Report Type: Spontaneous
  Country: US (occurrence: US)
  Receive Date: 20190429
  Receipt Date: 20190429
  Transmission Date: 20190711
  Serious: No
  Sender: FDA-Public Use
  Company Number: US-ABBVIE-12P-163-1000586-00

PATIENT

DRUGS (2)
  1. ANDROGEL [Suspect]
     Active Substance: TESTOSTERONE
     Indication: BLOOD TESTOSTERONE DECREASED
     Dosage: 2 PUMPS
     Route: 061
  2. ANDROGEL [Suspect]
     Active Substance: TESTOSTERONE
     Dosage: 1/2 TO 1 PUMP
     Route: 061

REACTIONS (3)
  - Blood testosterone free decreased [Unknown]
  - Blood testosterone free increased [Unknown]
  - Fatigue [Unknown]
